FAERS Safety Report 4186062 (Version 1)
Quarter: 2020Q3

REPORT INFORMATION
  Report Type: Spontaneous
  Country: DE (occurrence: None)
  Receive Date: 19990308
  Receipt Date: 19990308
  Transmission Date: 20201105
  Serious: Yes (Death, Life-Threatening)
  Sender: FDA-Public Use
  Company Number: 3800/50441

PATIENT
  Age: 34 Year
  Sex: Female

DRUGS (40)
  1. INSULIN HUMAN NOS [Suspect]
     Active Substance: INSULIN HUMAN
     Dosage: 50 IU/DAY;SC
     Route: 058
     Dates: start: 19960816
  2. TRIFLUPROMAZINE HYDROCHLORIDE. [Suspect]
     Active Substance: TRIFLUPROMAZINE HYDROCHLORIDE
     Dates: start: 19960816
  3. NEUPOGEN [Suspect]
     Active Substance: FILGRASTIM
     Indication: NEUTROPENIA
     Dates: start: 19960816, end: 19960817
  4. FLUCYTOSINE. [Suspect]
     Active Substance: FLUCYTOSINE
     Dosage: IV
     Route: 042
     Dates: start: 19960815
  5. CIPROFLOXACIN HYDROCHLORIDE. [Suspect]
     Active Substance: CIPROFLOXACIN HYDROCHLORIDE
     Dosage: IV
     Route: 042
     Dates: start: 19960817, end: 19960817
  6. ISOPTIN [Suspect]
     Active Substance: VERAPAMIL HYDROCHLORIDE
     Dates: start: 19960817, end: 19960817
  7. MORPHINE SULFATE. [Suspect]
     Active Substance: MORPHINE SULFATE
     Dates: start: 19960808, end: 19960816
  8. OMEPRAZOLE. [Suspect]
     Active Substance: OMEPRAZOLE
     Dosage: 20 MG/DAY; IV
     Route: 042
     Dates: start: 19960730
  9. DIFLUCAN [Suspect]
     Active Substance: FLUCONAZOLE
     Dosage: 400 MG/DAY;ORAL
     Route: 048
     Dates: start: 19960730, end: 19960816
  10. DOPAMINE [Suspect]
     Active Substance: DOPAMINE HYDROCHLORIDE
     Dates: start: 19960817
  11. IMODIUM [Suspect]
     Active Substance: LOPERAMIDE HYDROCHLORIDE
     Dates: start: 19960731, end: 19960816
  12. MULTI?VITAMIN [Suspect]
     Active Substance: .ALPHA.-TOCOPHEROL ACETATE, DL-\ASCORBIC ACID\CYANOCOBALAMIN\FLUORIDE ION\FOLIC ACID\NIACIN\PYRIDOXINE\RIBOFLAVIN\THIAMINE\VITAMIN A\VITAMIN D
     Dates: start: 19960802, end: 19960816
  13. ACETAMINOPHEN. [Suspect]
     Active Substance: ACETAMINOPHEN
     Dates: start: 19960805, end: 19960811
  14. VANCOMYCIN [Suspect]
     Active Substance: VANCOMYCIN
     Dates: start: 19960811
  15. DOLANTIN [Suspect]
     Active Substance: MEPERIDINE
     Dosage: 25 MG/DAY; IV
     Route: 042
     Dates: start: 19960816, end: 19960816
  16. ALBUMIN (HUMAN) [Suspect]
     Active Substance: ALBUMIN HUMAN
     Dates: start: 19960816, end: 19960817
  17. CLEOCIN PHOSPHATE [Suspect]
     Active Substance: CLINDAMYCIN PHOSPHATE
     Dosage: 200 MG/DAY;IV
     Route: 042
     Dates: start: 19960817, end: 19960817
  18. PIRITRAMIDE [Suspect]
     Active Substance: PIRITRAMIDE
     Dosage: 3.75 MG/DAY; IV
     Route: 042
     Dates: start: 19960816
  19. DORMICUM (MIDAZOLAM HYDROCHLORIDE) [Suspect]
     Active Substance: MIDAZOLAM HYDROCHLORIDE
     Dates: start: 19960818
  20. LASIX [Suspect]
     Active Substance: FUROSEMIDE
     Dates: start: 19960814, end: 19960814
  21. HEPARIN [Suspect]
     Active Substance: HEPARIN SODIUM
     Dates: start: 19960806
  22. MEROPENEM. [Suspect]
     Active Substance: MEROPENEM
     Dates: start: 19960816
  23. DIPYRONE [Suspect]
     Active Substance: DIPYRONE
     Dates: start: 19960811, end: 19960819
  24. CLAFORAN [Suspect]
     Active Substance: CEFOTAXIME SODIUM
     Dosage: 6 GM/DAY;IV
     Route: 042
     Dates: start: 19960805, end: 19960809
  25. GENTAMICIN. [Suspect]
     Active Substance: GENTAMICIN
     Dates: start: 19960805, end: 19960811
  26. METRONIDAZOLE. [Suspect]
     Active Substance: METRONIDAZOLE
     Dates: start: 19960805, end: 19960809
  27. SUPRARENIN [Suspect]
     Active Substance: EPINEPHRINE
     Dates: start: 19960817
  28. VITAMINS [Suspect]
     Active Substance: VITAMINS
     Dates: start: 19960809, end: 19960816
  29. CILASTATIN SODIUM\IMIPENEM [Suspect]
     Active Substance: CILASTATIN SODIUM\IMIPENEM
     Dates: start: 19960816, end: 19960816
  30. ZOFRAN [Suspect]
     Active Substance: ONDANSETRON HYDROCHLORIDE
     Dates: start: 19960730, end: 19960809
  31. ALLOPURINOL. [Suspect]
     Active Substance: ALLOPURINOL
     Dosage: 300 MG/DAY; ORAL
     Route: 048
     Dates: start: 19960729, end: 19960812
  32. AMPHOTERICIN B. [Suspect]
     Active Substance: AMPHOTERICIN B
     Dosage: 40 MG/DAY;IV
     Route: 042
     Dates: start: 19960816
  33. SARGRAMOSTIM [Suspect]
     Active Substance: SARGRAMOSTIM
     Dates: start: 19960804, end: 19960815
  34. METHOTREXATE. [Suspect]
     Active Substance: METHOTREXATE
     Dates: start: 19960730, end: 19960802
  35. OPIUM TINCTURE [Suspect]
     Active Substance: MORPHINE
     Dates: start: 19960807, end: 19960818
  36. PREDNISOLONE. [Suspect]
     Active Substance: PREDNISOLONE
     Dates: start: 19960817, end: 19960817
  37. AMOXICILLIN AND CLAVULANATE POTASSIUM [Suspect]
     Active Substance: AMOXICILLIN\CLAVULANATE POTASSIUM
     Dosage: 4 GM/DAY;IV
     Route: 042
     Dates: start: 19960807, end: 19960811
  38. LACTULOSE. [Suspect]
     Active Substance: LACTULOSE
     Dosage: ORAL
     Route: 048
     Dates: start: 19960813, end: 19960813
  39. METOCLOPRAMIDE. [Suspect]
     Active Substance: METOCLOPRAMIDE
     Dates: start: 19960804
  40. CLEMASTINE FUMARATE. [Suspect]
     Active Substance: CLEMASTINE FUMARATE
     Dates: start: 19960816

REACTIONS (12)
  - Cutaneous T-cell lymphoma [None]
  - Dermatitis [None]
  - Blister [None]
  - Hypertension [None]
  - Pain [None]
  - Lip disorder [None]
  - Neutropenia [None]
  - Shock [None]
  - Pruritus [None]
  - Stevens-Johnson syndrome [None]
  - Hyperglycaemia [None]
  - Pyrexia [None]

NARRATIVE: CASE EVENT DATE: 19990105
